FAERS Safety Report 26035517 (Version 2)
Quarter: 2025Q4

REPORT INFORMATION
  Report Type: Report from Study
  Country: BR (occurrence: BR)
  Receive Date: 20251112
  Receipt Date: 20251126
  Transmission Date: 20260118
  Serious: Yes (Hospitalization)
  Sender: EMD SERONO INC
  Company Number: BR-Merck Healthcare KGaA-2025057029

PATIENT
  Age: 0 Year
  Sex: Male
  Weight: 2 kg

DRUGS (1)
  1. MAVENCLAD [Suspect]
     Active Substance: CLADRIBINE
     Indication: Multiple sclerosis

REACTIONS (3)
  - Premature baby [Recovered/Resolved]
  - Hypotonia neonatal [Recovering/Resolving]
  - Immature respiratory system [Unknown]

NARRATIVE: CASE EVENT DATE: 20250823
